FAERS Safety Report 7715780-7 (Version None)
Quarter: 2011Q3

REPORT INFORMATION
  Report Type: 
  Country: None (occurrence: None)
  Receive Date: 20110829
  Receipt Date: 20110824
  Transmission Date: 20111222
  Serious: Yes (Death, Hospitalization)
  Sender: FDA-Public Use
  Company Number: US-ELI_LILLY_AND_COMPANY-US201008002018

PATIENT
  Sex: Male
  Weight: 100.64 kg

DRUGS (14)
  1. LIDOCAINE [Concomitant]
     Indication: PAIN MANAGEMENT
     Dosage: UNK, UNKNOWN
     Route: 065
     Dates: start: 20100803
  2. ONDANSERTRON HYDROCHLORIDE [Concomitant]
     Indication: PROPHYLAXIS OF NAUSEA AND VOMITING
     Dosage: UNK, UNKNOWN
     Route: 065
     Dates: start: 20100615
  3. DEXAMETHASONE [Concomitant]
     Indication: PROPHYLAXIS
     Dosage: UNK, UNKNOWN
     Route: 065
     Dates: start: 20100615
  4. FENOFIBRATE [Concomitant]
     Indication: HYPERCHOLESTEROLAEMIA
     Dosage: UNK, UNKNOWN
     Route: 065
     Dates: start: 20100501
  5. PEMETREXED [Suspect]
     Indication: NON-SMALL CELL LUNG CANCER
     Dosage: 500 MG/M2, OTHER
     Route: 042
     Dates: start: 20100622, end: 20100803
  6. FOLIC ACID [Concomitant]
     Indication: PROPHYLAXIS
     Dosage: UNK, UNKNOWN
     Route: 065
     Dates: start: 20100615
  7. CARBOPLATIN [Suspect]
     Indication: NON-SMALL CELL LUNG CANCER
     Dosage: UNK, OTHER
     Route: 042
     Dates: start: 20100622, end: 20100803
  8. LORAZEPAM [Concomitant]
     Indication: ANXIETY
     Dosage: UNK, UNKNOWN
     Route: 065
     Dates: start: 20100815
  9. VITAMIN B-12 [Concomitant]
     Indication: PROPHYLAXIS
     Dosage: UNK, UNKNOWN
     Route: 065
     Dates: start: 20100615
  10. PROCHLORPERAZINE MALEATE [Concomitant]
     Indication: NAUSEA
     Dosage: UNK, UNKNOWN
     Route: 065
     Dates: start: 20100615
  11. METFORMIN HYDROCHLORIDE [Concomitant]
     Indication: TYPE 2 DIABETES MELLITUS
     Dosage: UNK, UNKNOWN
     Route: 065
     Dates: start: 20060401
  12. AVASTIN [Suspect]
     Indication: NON-SMALL CELL LUNG CANCER
     Dosage: 15 MG/KG, OTHER
     Route: 042
     Dates: start: 20100622, end: 20100803
  13. FENTANYL [Concomitant]
     Indication: PAIN MANAGEMENT
     Dosage: UNK, UNKNOWN
     Route: 065
     Dates: start: 20100615
  14. WARFARIN SODIUM [Concomitant]
     Indication: ANTICOAGULANT THERAPY
     Dosage: UNK, UNKNOWN
     Route: 065
     Dates: start: 20100517

REACTIONS (1)
  - MICROANGIOPATHIC HAEMOLYTIC ANAEMIA [None]
